FAERS Safety Report 15373920 (Version 2)
Quarter: 2018Q4

REPORT INFORMATION
  Report Type: Spontaneous
  Country: US (occurrence: US)
  Receive Date: 20180912
  Receipt Date: 20181005
  Transmission Date: 20190204
  Serious: No
  Sender: FDA-Public Use
  Company Number: US-ASTRAZENECA-2018SF09882

PATIENT
  Sex: Male

DRUGS (3)
  1. ALBUTEROL SULPHATE [Concomitant]
     Active Substance: ALBUTEROL
     Dosage: UNKNOWN
     Route: 055
  2. BUDESONIDE. [Concomitant]
     Active Substance: BUDESONIDE
     Dosage: UNKNOWN
     Route: 065
  3. TUDORZA PRESSAIR [Suspect]
     Active Substance: ACLIDINIUM BROMIDE
     Indication: LUNG DISORDER
     Dosage: 400 MCG, ONE PUFF TWICE DAILY
     Route: 055

REACTIONS (7)
  - Prostatic disorder [Unknown]
  - Off label use [Unknown]
  - Alpha-1 anti-trypsin deficiency [Unknown]
  - Product use in unapproved indication [Unknown]
  - Urinary retention [Unknown]
  - Intentional product misuse [Unknown]
  - Device malfunction [Unknown]
